FAERS Safety Report 12067357 (Version 4)
Quarter: 2019Q3

REPORT INFORMATION
  Report Type: Spontaneous
  Country: US (occurrence: US)
  Receive Date: 20160211
  Receipt Date: 20190813
  Transmission Date: 20191004
  Serious: No
  Sender: FDA-Public Use
  Company Number: US-009507513-1602USA003988

PATIENT
  Age: 24 Year
  Sex: Female

DRUGS (7)
  1. INTELENCE [Suspect]
     Active Substance: ETRAVIRINE
     Dosage: 1 TABLET/CAPSULE, ONCE DAILY, FIRST COURSE, WEEK BEGAN: 31
     Route: 048
     Dates: start: 20151127
  2. RETROVIR [Suspect]
     Active Substance: ZIDOVUDINE
     Dosage: FIRST COURSE; TOTAL DAILY DOSE: 2 MG/KG/HOUR; WEEK BEGAN/WEEK
     Route: 042
     Dates: start: 20151210, end: 20151210
  3. EPIVIR [Suspect]
     Active Substance: LAMIVUDINE
     Dosage: 1 TABLET/CAPSULE, ONCE DAILY, FIRST COURSE, WEEK BEGAN: 20
     Route: 048
     Dates: start: 20150911
  4. TRUVADA [Suspect]
     Active Substance: EMTRICITABINE\TENOFOVIR DISOPROXIL FUMARATE
     Indication: HIV INFECTION
     Dosage: 1 TAB/CAPS, QD, WEEK ENDED: 20
     Route: 048
     Dates: end: 20150911
  5. RETROVIR [Suspect]
     Active Substance: ZIDOVUDINE
     Dosage: SECOND COURSE; TOTAL DAILY DOSE: MG/KG/HOUR; WEEK BEGAN/WEEK ENDED: 33
     Route: 042
     Dates: start: 20151210, end: 20151210
  6. ISENTRESS [Suspect]
     Active Substance: RALTEGRAVIR POTASSIUM
     Indication: HIV INFECTION
     Dosage: 800 MG, QD
     Route: 048
  7. VIREAD [Suspect]
     Active Substance: TENOFOVIR DISOPROXIL FUMARATE
     Dosage: 1 TABLET/CAPSULE, QD, FIRST COURSE, WEEK BEGAN: 20
     Route: 048
     Dates: start: 20150911

REACTIONS (2)
  - Premature delivery [Unknown]
  - Maternal exposure during pregnancy [Recovered/Resolved]

NARRATIVE: CASE EVENT DATE: 20151210
